FAERS Safety Report 4916092-7 (Version None)
Quarter: 2006Q1

REPORT INFORMATION
  Report Type: 
  Country: None (occurrence: None)
  Receive Date: 20060214
  Receipt Date: 20060123
  Transmission Date: 20060701
  Serious: Yes (Hospitalization, Other)
  Sender: FDA-Public Use
  Company Number: US_0503114452

PATIENT
  Age: 52 Year
  Sex: Female
  Weight: 125.5 kg

DRUGS (10)
  1. ZYPREXA [Suspect]
     Indication: BIPOLAR DISORDER
     Dosage: 10 MG, DAILY (1/D), ORAL
     Route: 048
     Dates: start: 20021015, end: 20030101
  2. PROZAC [Concomitant]
  3. VICODIN [Concomitant]
  4. DARVOCET [Concomitant]
  5. VIOXX [Concomitant]
  6. LORCET-HD [Concomitant]
  7. IBUPROFEN [Concomitant]
  8. COMBIVENT [Concomitant]
  9. DOLOPHINE (METHADONE HYDROCHLORIDE) [Concomitant]
  10. MS CONTIN [Concomitant]

REACTIONS (15)
  - ASCITES [None]
  - BILIARY ANASTOMOSIS COMPLICATION [None]
  - BLOOD ALKALINE PHOSPHATASE INCREASED [None]
  - CHOLECYSTITIS [None]
  - CONDITION AGGRAVATED [None]
  - DIABETES MELLITUS [None]
  - DIABETIC NEUROPATHY [None]
  - DUODENAL OBSTRUCTION [None]
  - GASTROINTESTINAL ARTERIOVENOUS MALFORMATION [None]
  - GASTROINTESTINAL HAEMORRHAGE [None]
  - IRON DEFICIENCY ANAEMIA [None]
  - PANCREATIC PSEUDOCYST [None]
  - PANCREATITIS CHRONIC [None]
  - PULMONARY EMBOLISM [None]
  - PULMONARY FIBROSIS [None]
